FAERS Safety Report 12544645 (Version 1)
Quarter: 2016Q3

REPORT INFORMATION
  Report Type: Spontaneous
  Country: KP (occurrence: KP)
  Receive Date: 20160711
  Receipt Date: 20160711
  Transmission Date: 20161109
  Serious: Yes (Hospitalization)
  Sender: FDA-Public Use
  Company Number: KP-CITRON PHARMA LLC-B16-0083-AE

PATIENT
  Age: 61 Year
  Sex: Female

DRUGS (2)
  1. PREDNISOLONE. [Suspect]
     Active Substance: PREDNISOLONE
     Indication: CUSHING^S SYNDROME
     Dosage: 5 MG DAILY
     Route: 065
  2. FLUDROCORTISONE ACETATE. [Suspect]
     Active Substance: FLUDROCORTISONE ACETATE
     Indication: CUSHING^S SYNDROME
     Dosage: 0.1 MG DAILY
     Route: 065

REACTIONS (8)
  - Arthritis infective [Recovering/Resolving]
  - Joint swelling [Recovering/Resolving]
  - Pyrexia [Recovering/Resolving]
  - Abdominal pain [Recovering/Resolving]
  - Bronchiectasis [Recovering/Resolving]
  - Arthralgia [Recovering/Resolving]
  - Diarrhoea [Recovering/Resolving]
  - Gastroenteritis bacterial [Recovering/Resolving]
